FAERS Safety Report 24326089 (Version 3)
Quarter: 2024Q3

REPORT INFORMATION
  Report Type: Spontaneous
  Country: JP (occurrence: JP)
  Receive Date: 20240917
  Receipt Date: 20240924
  Transmission Date: 20241017
  Serious: Yes (Hospitalization)
  Sender: SANOFI AVENTIS
  Company Number: JP-SA-2024SA263851

PATIENT
  Age: 57 Year
  Sex: Male
  Weight: 52.9 kg

DRUGS (14)
  1. CAPRELSA [Suspect]
     Active Substance: VANDETANIB
     Indication: Medullary thyroid cancer
     Dosage: 300 MG, QD
     Route: 048
     Dates: start: 20240515, end: 20240529
  2. CAPRELSA [Suspect]
     Active Substance: VANDETANIB
     Dosage: 200 MG, QD
     Route: 048
     Dates: start: 20240530, end: 20240611
  3. CAPRELSA [Suspect]
     Active Substance: VANDETANIB
     Dosage: 300 MG, QD
     Route: 048
     Dates: start: 20240612, end: 20240626
  4. CAPRELSA [Suspect]
     Active Substance: VANDETANIB
     Dosage: 200 MG, QD
     Route: 048
     Dates: start: 20240702
  5. TARLIGE OD [Concomitant]
     Indication: Product used for unknown indication
     Route: 048
  6. ACETAMINOPHEN [Concomitant]
     Active Substance: ACETAMINOPHEN
     Indication: Product used for unknown indication
     Route: 048
  7. LEVOTHYROXINE SODIUM [Concomitant]
     Active Substance: LEVOTHYROXINE SODIUM
     Indication: Product used for unknown indication
     Route: 048
  8. LOXOPROFEN SODIUM [Concomitant]
     Active Substance: LOXOPROFEN SODIUM
     Indication: Product used for unknown indication
     Route: 048
  9. FUROSEMIDE [Concomitant]
     Active Substance: FUROSEMIDE
     Indication: Product used for unknown indication
     Route: 048
  10. DAYVIGO [Concomitant]
     Active Substance: LEMBOREXANT
     Indication: Product used for unknown indication
     Route: 048
  11. OXYCODONE NX [Concomitant]
     Indication: Product used for unknown indication
     Route: 048
  12. OXYCODONE HYDROCHLORIDE [Concomitant]
     Active Substance: OXYCODONE HYDROCHLORIDE
     Indication: Product used for unknown indication
     Route: 048
  13. FEBUXOSTAT OD [Concomitant]
     Indication: Product used for unknown indication
     Route: 048
  14. MIYA-BM [Concomitant]
     Active Substance: CLOSTRIDIUM BUTYRICUM SPORES STRAIN M-55
     Indication: Product used for unknown indication
     Route: 048

REACTIONS (2)
  - Anaemia [Recovered/Resolved]
  - Anaemia [Recovered/Resolved]

NARRATIVE: CASE EVENT DATE: 20240525
